FAERS Safety Report 24277004 (Version 2)
Quarter: 2024Q3

REPORT INFORMATION
  Report Type: Spontaneous
  Country: DE (occurrence: DE)
  Receive Date: 20240903
  Receipt Date: 20240909
  Transmission Date: 20241016
  Serious: Yes (Life-Threatening, Hospitalization, Other)
  Sender: PFIZER
  Company Number: DE-MLMSERVICE-20181121-1497004-1

PATIENT
  Age: 69 Year
  Sex: Male

DRUGS (1)
  1. DOCETAXEL [Suspect]
     Active Substance: DOCETAXEL\DOCETAXEL ANHYDROUS
     Indication: Prostate cancer metastatic
     Dosage: UNK

REACTIONS (3)
  - Eubacterium infection [Recovering/Resolving]
  - Acute cholecystitis necrotic [Recovering/Resolving]
  - Immunosuppression [Unknown]
